FAERS Safety Report 14586983 (Version 2)
Quarter: 2018Q1

REPORT INFORMATION
  Report Type: Spontaneous
  Country: FR (occurrence: FR)
  Receive Date: 20180301
  Receipt Date: 20180305
  Transmission Date: 20180509
  Serious: Yes (Hospitalization, Other)
  Sender: FDA-Public Use
  Company Number: FR-ABBVIE-18S-056-2267038-00

PATIENT
  Age: 27 Year
  Sex: Female
  Weight: 53.5 kg

DRUGS (5)
  1. NORVIR [Suspect]
     Active Substance: RITONAVIR
     Indication: HIV INFECTION
     Dosage: COMPRIM? PELLICUL?
     Route: 048
     Dates: start: 20171230
  2. COMBIVIR [Interacting]
     Active Substance: LAMIVUDINE\ZIDOVUDINE
     Indication: HIV INFECTION
     Dosage: 150 MG/300 MG, COMPRIM? PELLICUL?
     Route: 048
     Dates: start: 20171230, end: 20180108
  3. ZELITREX [Interacting]
     Active Substance: VALACYCLOVIR HYDROCHLORIDE
     Indication: CYTOMEGALOVIRUS INFECTION
     Route: 048
     Dates: start: 20180105, end: 20180108
  4. BACTRIM [Interacting]
     Active Substance: SULFAMETHOXAZOLE\TRIMETHOPRIM
     Indication: INFECTION
     Dosage: INCONNUE
     Route: 048
     Dates: start: 20180105, end: 20180122
  5. PREZISTA [Interacting]
     Active Substance: DARUNAVIR ETHANOLATE
     Indication: HIV INFECTION
     Dosage: COMPRIM? PELLICUL?
     Route: 048
     Dates: start: 20171230

REACTIONS (2)
  - Drug interaction [Unknown]
  - Acute kidney injury [Recovered/Resolved]

NARRATIVE: CASE EVENT DATE: 20180108
